FAERS Safety Report 16440410 (Version 1)
Quarter: 2019Q2

REPORT INFORMATION
  Report Type: Spontaneous
  Country: AR (occurrence: AR)
  Receive Date: 20190617
  Receipt Date: 20190617
  Transmission Date: 20190711
  Serious: Yes (Other)
  Sender: FDA-Public Use
  Company Number: AR-PFIZER INC-2019216602

PATIENT
  Age: 60 Year
  Sex: Female

DRUGS (1)
  1. IBRANCE [Suspect]
     Active Substance: PALBOCICLIB
     Indication: BREAST CANCER METASTATIC
     Dosage: 100 MG, CYCLIC (DAILY, SCHEME 3X1)
     Dates: start: 20180324, end: 20190529

REACTIONS (4)
  - Hip fracture [Unknown]
  - White blood cell count decreased [Recovered/Resolved]
  - Feeling abnormal [Unknown]
  - Osteoporosis [Unknown]

NARRATIVE: CASE EVENT DATE: 201902
